FAERS Safety Report 12960140 (Version 3)
Quarter: 2017Q1

REPORT INFORMATION
  Report Type: Spontaneous
  Country: US (occurrence: US)
  Receive Date: 20161121
  Receipt Date: 20170209
  Transmission Date: 20170428
  Serious: Yes (Hospitalization, Other)
  Sender: FDA-Public Use
  Company Number: US-JNJFOC-20161117686

PATIENT
  Age: 81 Year
  Sex: Male
  Weight: 111 kg

DRUGS (17)
  1. DARZALEX [Suspect]
     Active Substance: DARATUMUMAB
     Indication: PLASMA CELL MYELOMA
     Route: 042
  2. POMALIDOMIDE [Concomitant]
     Active Substance: POMALIDOMIDE
     Indication: PLASMA CELL MYELOMA
     Dates: start: 20160922, end: 20161012
  3. ALBUTEROL. [Concomitant]
     Active Substance: ALBUTEROL
  4. SUCRALFATE. [Concomitant]
     Active Substance: SUCRALFATE
     Dates: start: 20160217, end: 20161126
  5. PROAIR HFA [Concomitant]
     Active Substance: ALBUTEROL SULFATE
     Route: 055
  6. DARZALEX [Suspect]
     Active Substance: DARATUMUMAB
     Indication: PLASMA CELL MYELOMA
     Route: 042
     Dates: start: 20161018, end: 20161025
  7. VALIUM [Concomitant]
     Active Substance: DIAZEPAM
  8. CARAFATE [Concomitant]
     Active Substance: SUCRALFATE
  9. PROTONIX [Concomitant]
     Active Substance: PANTOPRAZOLE SODIUM
  10. MONTELUKAST [Concomitant]
     Active Substance: MONTELUKAST SODIUM
     Dates: start: 20161013, end: 20161221
  11. REVLIMID [Suspect]
     Active Substance: LENALIDOMIDE
     Indication: PLASMA CELL MYELOMA
     Route: 065
     Dates: start: 20161012, end: 20161102
  12. SINGULAIR [Concomitant]
     Active Substance: MONTELUKAST SODIUM
  13. TRAMADOL. [Concomitant]
     Active Substance: TRAMADOL
  14. AMBIEN [Concomitant]
     Active Substance: ZOLPIDEM TARTRATE
  15. DEXAMETHASONE. [Concomitant]
     Active Substance: DEXAMETHASONE
     Indication: PLASMA CELL MYELOMA
     Dates: start: 20160502, end: 20161126
  16. ACYCLOVIR. [Concomitant]
     Active Substance: ACYCLOVIR
  17. ACETAMINOPHEN AND CODEINE [Concomitant]
     Active Substance: ACETAMINOPHEN\CODEINE PHOSPHATE

REACTIONS (3)
  - Liver function test abnormal [Recovered/Resolved]
  - Blood bilirubin increased [Recovered/Resolved]
  - Inappropriate schedule of drug administration [Unknown]

NARRATIVE: CASE EVENT DATE: 20161024
